FAERS Safety Report 7320043-8 (Version None)
Quarter: 2011Q1

REPORT INFORMATION
  Report Type: 
  Country: None (occurrence: None)
  Receive Date: 20110228
  Receipt Date: 20110222
  Transmission Date: 20110831
  Serious: Yes (Death, Hospitalization)
  Sender: FDA-Public Use
  Company Number: US-GENZYME-MOZO-1000413

PATIENT
  Sex: Male

DRUGS (5)
  1. THIOTEPA [Concomitant]
     Indication: ACUTE LYMPHOCYTIC LEUKAEMIA
  2. MOZOBIL [Suspect]
     Indication: ACUTE LYMPHOCYTIC LEUKAEMIA
     Dosage: 6 MG, ONCE
     Route: 042
     Dates: start: 20100917, end: 20100917
  3. MELPHALAN [Concomitant]
     Indication: ACUTE LYMPHOCYTIC LEUKAEMIA
  4. ACICLOVIR [Concomitant]
     Indication: ANTIVIRAL PROPHYLAXIS
     Dosage: 1940 MG/DAY, QD
     Route: 042
     Dates: start: 20100923, end: 20101002
  5. FLUDARA [Suspect]
     Indication: ACUTE LYMPHOCYTIC LEUKAEMIA
     Dosage: 30 MG/M2, QD
     Route: 065
     Dates: start: 20100912, end: 20100916

REACTIONS (2)
  - PARAINFLUENZAE VIRUS INFECTION [None]
  - RESPIRATORY FAILURE [None]
